FAERS Safety Report 9999002 (Version 1)
Quarter: 2014Q1

REPORT INFORMATION
  Report Type: Spontaneous
  Country: US (occurrence: None)
  Receive Date: 20140311
  Receipt Date: 20140311
  Transmission Date: 20141002
  Serious: Yes (Life-Threatening)
  Sender: FDA-Public Use
  Company Number: None

PATIENT
  Age: 28 Year
  Sex: Male
  Weight: 61.24 kg

DRUGS (2)
  1. CLARITIN D EXTENDED RELEASE [Suspect]
     Indication: HYPERSENSITIVITY
     Route: 048
     Dates: start: 20100801, end: 20101201
  2. CLARITIN D EXTENDED RELEASE [Suspect]
     Indication: SINUS CONGESTION
     Route: 048
     Dates: start: 20100801, end: 20101201

REACTIONS (4)
  - Depression [None]
  - Suicidal ideation [None]
  - Anxiety [None]
  - Anxiety [None]
